FAERS Safety Report 6964871-7 (Version None)
Quarter: 2010Q3

REPORT INFORMATION
  Report Type: 
  Country: None (occurrence: None)
  Receive Date: 20100903
  Receipt Date: 20100825
  Transmission Date: 20110219
  Serious: Yes (Life-Threatening)
  Sender: FDA-Public Use
  Company Number: US-JNJFOC-20100808449

PATIENT
  Sex: Male
  Weight: 65 kg

DRUGS (9)
  1. ETRAVIRINE [Suspect]
     Indication: HIV INFECTION
     Route: 048
  2. TRUVADA [Suspect]
     Indication: HIV INFECTION
     Route: 048
  3. MULTI-VITAMINS [Concomitant]
  4. LAMICTAL [Concomitant]
     Indication: BIPOLAR DISORDER
     Route: 048
  5. PROZAC [Concomitant]
     Indication: BIPOLAR DISORDER
     Route: 048
  6. ALPRAZOLAM [Concomitant]
     Indication: BIPOLAR DISORDER
  7. ZYRTEC [Concomitant]
  8. IBUPROFEN [Concomitant]
  9. ACETAMINOPHEN [Concomitant]

REACTIONS (1)
  - SUICIDE ATTEMPT [None]
